FAERS Safety Report 6261817-4 (Version None)
Quarter: 2009Q3

REPORT INFORMATION
  Report Type: 
  Country: None (occurrence: None)
  Receive Date: 20090709
  Receipt Date: 20090701
  Transmission Date: 20100115
  Serious: No
  Sender: FDA-Public Use
  Company Number: US-B.I. PHARMACEUTICALS,INC./RIDGEFIELD-2009-BP-07495BP

PATIENT
  Age: 62 Year
  Sex: Female
  Weight: 88.6 kg

DRUGS (1)
  1. MICARDIS [Suspect]
     Indication: HYPERTENSION
     Dates: end: 20090625

REACTIONS (2)
  - RASH PRURITIC [None]
  - THROAT TIGHTNESS [None]
